FAERS Safety Report 17912636 (Version 5)
Quarter: 2022Q2

REPORT INFORMATION
  Report Type: Spontaneous
  Country: US (occurrence: US)
  Receive Date: 20200618
  Receipt Date: 20220401
  Transmission Date: 20220721
  Serious: Yes (Hospitalization, Other)
  Sender: FDA-Public Use
  Company Number: US-GILEAD-2020-0473465

PATIENT
  Age: 47 Year
  Sex: Female
  Weight: 72.562 kg

DRUGS (66)
  1. TRUVADA [Suspect]
     Active Substance: EMTRICITABINE\TENOFOVIR DISOPROXIL FUMARATE
     Indication: HIV infection
     Dosage: UNK
     Route: 048
     Dates: start: 2004, end: 20150924
  2. TRUVADA [Suspect]
     Active Substance: EMTRICITABINE\TENOFOVIR DISOPROXIL FUMARATE
     Dosage: UNK
     Route: 048
     Dates: start: 2004, end: 20110412
  3. TRUVADA [Suspect]
     Active Substance: EMTRICITABINE\TENOFOVIR DISOPROXIL FUMARATE
     Dosage: UNK
     Route: 048
     Dates: start: 20110623, end: 20150924
  4. CALCIUM [Concomitant]
     Active Substance: CALCIUM
  5. ACETAMINOPHEN [Concomitant]
     Active Substance: ACETAMINOPHEN
  6. ACYCLOVIR SODIUM [Concomitant]
     Active Substance: ACYCLOVIR SODIUM
  7. ALENDRONATE [Concomitant]
     Active Substance: ALENDRONATE SODIUM
  8. AMITRIPTYLINE [Concomitant]
     Active Substance: AMITRIPTYLINE
  9. AMOXICILLIN [Concomitant]
     Active Substance: AMOXICILLIN
  10. ASPIRIN SODIUM [Concomitant]
     Active Substance: ASPIRIN SODIUM
  11. ATORVASTATIN [Concomitant]
     Active Substance: ATORVASTATIN
  12. BACTRIM [Concomitant]
     Active Substance: SULFAMETHOXAZOLE\TRIMETHOPRIM
  13. CYCLOSPORINE [Concomitant]
     Active Substance: CYCLOSPORINE
  14. LASIX [Concomitant]
     Active Substance: FUROSEMIDE
  15. LEVOTHYROXINE [Concomitant]
     Active Substance: LEVOTHYROXINE
  16. OMEPRAZOLE [Concomitant]
     Active Substance: OMEPRAZOLE
  17. PREDNISONE [Concomitant]
     Active Substance: PREDNISONE
  18. COMBIVIR [Concomitant]
     Active Substance: LAMIVUDINE\ZIDOVUDINE
  19. CRIXIVAN [Concomitant]
     Active Substance: INDINAVIR SULFATE
  20. EPIVIR [Concomitant]
     Active Substance: LAMIVUDINE
  21. KALETRA [Concomitant]
     Active Substance: LOPINAVIR\RITONAVIR
  22. NORVIR [Concomitant]
     Active Substance: RITONAVIR
  23. REYATAZ [Concomitant]
     Active Substance: ATAZANAVIR SULFATE
  24. SUSTIVA [Concomitant]
     Active Substance: EFAVIRENZ
  25. TRIUMEQ [Concomitant]
     Active Substance: ABACAVIR SULFATE\DOLUTEGRAVIR SODIUM\LAMIVUDINE
  26. ZIAGEN [Concomitant]
     Active Substance: ABACAVIR SULFATE
  27. ACETAMINOPHEN\HYDROCODONE [Concomitant]
     Active Substance: ACETAMINOPHEN\HYDROCODONE
  28. ESTRADIOL [Concomitant]
     Active Substance: ESTRADIOL
  29. KLONOPIN [Concomitant]
     Active Substance: CLONAZEPAM
  30. ATIVAN [Concomitant]
     Active Substance: LORAZEPAM
  31. LISINOPRIL [Concomitant]
     Active Substance: LISINOPRIL
  32. LORAZEPAM [Concomitant]
     Active Substance: LORAZEPAM
  33. ESTROGENS [Concomitant]
     Active Substance: ESTROGENS
  34. FENOFIBRATE [Concomitant]
     Active Substance: FENOFIBRATE
  35. PIROXICAM [Concomitant]
     Active Substance: PIROXICAM
  36. LEXAPRO [Concomitant]
     Active Substance: ESCITALOPRAM OXALATE
  37. HYDROCORTISONE [Concomitant]
     Active Substance: HYDROCORTISONE
  38. SYNTHROID [Concomitant]
     Active Substance: LEVOTHYROXINE SODIUM
  39. LEVOXYL [Concomitant]
     Active Substance: LEVOTHYROXINE SODIUM
  40. NAPROXEN [Concomitant]
     Active Substance: NAPROXEN
  41. FLEXERIL [Concomitant]
     Active Substance: CYCLOBENZAPRINE HYDROCHLORIDE
  42. IBUPROFEN [Concomitant]
     Active Substance: IBUPROFEN
  43. PROGESTERONE [Concomitant]
     Active Substance: PROGESTERONE
  44. NAPROSYN [Concomitant]
     Active Substance: NAPROXEN
  45. DICLOFENAC [Concomitant]
     Active Substance: DICLOFENAC
  46. ADENOSINE [Concomitant]
     Active Substance: ADENOSINE
  47. MELOXICAM [Concomitant]
     Active Substance: MELOXICAM
  48. MIRALAX [Concomitant]
     Active Substance: POLYETHYLENE GLYCOL 3350
  49. GEODON [Concomitant]
     Active Substance: ZIPRASIDONE HYDROCHLORIDE\ZIPRASIDONE MESYLATE
  50. ARNUITY ELLIPTA [Concomitant]
     Active Substance: FLUTICASONE FUROATE
  51. EPZICOM [Concomitant]
     Active Substance: ABACAVIR SULFATE\LAMIVUDINE
  52. DOXYCYCLINE [Concomitant]
     Active Substance: DOXYCYCLINE
  53. LINZESS [Concomitant]
     Active Substance: LINACLOTIDE
  54. GABAPENTIN [Concomitant]
     Active Substance: GABAPENTIN
  55. IVERMECTIN [Concomitant]
     Active Substance: IVERMECTIN
  56. IPRATROPIUM [Concomitant]
     Active Substance: IPRATROPIUM
  57. NEOMYCIN [Concomitant]
     Active Substance: NEOMYCIN
  58. NITROGLYCERIN [Concomitant]
     Active Substance: NITROGLYCERIN
  59. VENTOLIN [Concomitant]
     Active Substance: ALBUTEROL SULFATE
  60. ZITHROMAX [Concomitant]
     Active Substance: AZITHROMYCIN DIHYDRATE
  61. OXYBUTYNIN CHLORIDE [Concomitant]
     Active Substance: OXYBUTYNIN CHLORIDE
  62. ZOFRAN [Concomitant]
     Active Substance: ONDANSETRON HYDROCHLORIDE
  63. PENTOXIFYLLINE [Concomitant]
     Active Substance: PENTOXIFYLLINE
  64. SHINGRIX [Concomitant]
     Active Substance: RECOMBINANT VARICELLA ZOSTER VIRUS (VZV) GLYCOPROTEIN E
  65. TESSALON [Concomitant]
     Active Substance: BENZONATATE
  66. TAMIFLU [Concomitant]
     Active Substance: OSELTAMIVIR PHOSPHATE

REACTIONS (29)
  - Foot fracture [Recovered/Resolved]
  - Hand fracture [Recovered/Resolved]
  - Upper limb fracture [Recovered/Resolved]
  - Foot fracture [Recovered/Resolved]
  - Chronic kidney disease [Not Recovered/Not Resolved]
  - Multiple fractures [Unknown]
  - Osteoporosis [Not Recovered/Not Resolved]
  - Nephrolithiasis [Unknown]
  - Ureterolithiasis [Unknown]
  - Renal failure [Unknown]
  - Osteopenia [Not Recovered/Not Resolved]
  - Tooth loss [Not Recovered/Not Resolved]
  - Bone density decreased [Unknown]
  - Depression [Unknown]
  - Anxiety [Unknown]
  - Haematuria [Unknown]
  - Renal cyst [Unknown]
  - Loose tooth [Not Recovered/Not Resolved]
  - Scoliosis [Unknown]
  - Spinal osteoarthritis [Unknown]
  - Exostosis [Unknown]
  - Intervertebral disc degeneration [Unknown]
  - Vertebral foraminal stenosis [Unknown]
  - Osteoarthritis [Unknown]
  - Tooth fracture [Unknown]
  - Periodontitis [Unknown]
  - Gingival swelling [Unknown]
  - Oropharyngeal plaque [Unknown]
  - Bone loss [Unknown]

NARRATIVE: CASE EVENT DATE: 20080101
